FAERS Safety Report 8612985-8 (Version None)
Quarter: 2012Q3

REPORT INFORMATION
  Report Type: 
  Country: None (occurrence: None)
  Receive Date: 20120822
  Receipt Date: 20120810
  Transmission Date: 20120928
  Serious: Yes (Hospitalization, Other)
  Sender: FDA-Public Use
  Company Number: JP-VERTEX PHARMACEUTICAL INC.-2012-019674

PATIENT
  Age: 62 Year
  Sex: Female

DRUGS (8)
  1. RIBAVIRIN [Concomitant]
     Indication: HEPATITIS C
     Dosage: 400 MG, QID
     Route: 048
  2. VOGLIBOSE [Concomitant]
     Route: 048
  3. PEGINTERFERON ALFA-2B [Concomitant]
     Indication: HEPATITIS C
     Dosage: 1.5 A?G/KG, UNK
     Route: 058
  4. VX-950 [Suspect]
     Indication: HEPATITIS C
     Dosage: 2500 MG, QD
     Route: 048
     Dates: start: 20120502, end: 20120702
  5. RIBAVIRIN [Concomitant]
     Dosage: 200 MG, QID
     Route: 048
  6. ACTOS [Concomitant]
     Dosage: UNK
     Route: 048
  7. VX-950 [Suspect]
     Dosage: 250 MG, UNK
     Route: 048
     Dates: start: 20120703, end: 20120724
  8. FAMOTIDINE [Concomitant]
     Route: 048

REACTIONS (4)
  - MALAISE [None]
  - VOMITING [None]
  - NAUSEA [None]
  - ANAEMIA [None]
